FAERS Safety Report 14536168 (Version 2)
Quarter: 2018Q1

REPORT INFORMATION
  Report Type: Report from Study
  Country: ZA (occurrence: ZA)
  Receive Date: 20180215
  Receipt Date: 20180217
  Transmission Date: 20180509
  Serious: Yes (Death, Hospitalization, Other)
  Sender: FDA-Public Use
  Company Number: ZA-AMGEN-ZAFSL2018021278

PATIENT
  Sex: Male

DRUGS (1)
  1. ARANESP [Suspect]
     Active Substance: DARBEPOETIN ALFA
     Indication: CHRONIC KIDNEY DISEASE
     Dosage: 100 MUG, Q2WK
     Route: 058
     Dates: start: 201711

REACTIONS (3)
  - Arteriovenous fistula site infection [Unknown]
  - Arteriovenous fistula site complication [Unknown]
  - Sepsis [Fatal]
